FAERS Safety Report 8326024-X (Version None)
Quarter: 2012Q2

REPORT INFORMATION
  Report Type: 
  Country: None (occurrence: None)
  Receive Date: 20120501
  Receipt Date: 20100603
  Transmission Date: 20120825
  Serious: No
  Sender: FDA-Public Use
  Company Number: US-TEVA-2010003051

PATIENT
  Sex: Female
  Weight: 59.02 kg

DRUGS (14)
  1. NUVIGIL [Suspect]
     Indication: SLEEP APNOEA SYNDROME
     Dosage: 250 MILLIGRAM;
     Route: 048
     Dates: start: 20100515, end: 20100523
  2. HYDROCHLOROTHIAZIDE [Concomitant]
     Indication: RENAL TUBULAR ACIDOSIS
     Dosage: 100 MILLIGRAM;
     Dates: start: 19800101, end: 20100519
  3. VITAMIN B-12 [Concomitant]
     Indication: PERNICIOUS ANAEMIA
     Route: 058
     Dates: start: 19960101, end: 20100519
  4. LYRICA [Concomitant]
     Indication: CARPAL TUNNEL SYNDROME
     Dosage: 150 MILLIGRAM;
     Dates: start: 20091101, end: 20100519
  5. NAMENDA [Concomitant]
     Indication: PAIN
     Dosage: 1.4286 MILLIGRAM;
     Dates: start: 20090101, end: 20100519
  6. UROCIT-K [Concomitant]
     Indication: RENAL TUBULAR ACIDOSIS
     Dosage: 60 MILLIEQUIVALENTS;
     Dates: start: 19800101, end: 20100519
  7. CRESTOR [Concomitant]
     Indication: BLOOD CHOLESTEROL INCREASED
     Dosage: 10 MILLIGRAM;
     Dates: start: 20050101, end: 20100519
  8. NUVIGIL [Suspect]
     Dosage: 375 MILLIGRAM;
     Route: 048
     Dates: start: 20100515, end: 20100523
  9. LEXAPRO [Concomitant]
     Indication: DEPRESSION
     Dosage: 10 MILLIGRAM;
     Dates: start: 20100512, end: 20100519
  10. NEXIUM [Concomitant]
     Indication: ULCER
     Dosage: 40 MILLIGRAM;
     Dates: start: 19960101, end: 20100519
  11. PLAVIX [Concomitant]
     Dates: start: 19980101, end: 20100519
  12. ASPIRIN [Concomitant]
     Indication: CEREBROVASCULAR ACCIDENT
     Dates: start: 19980101, end: 20100519
  13. LABERTROL [Concomitant]
     Indication: HYPERTENSION
     Dosage: 400 MILLIGRAM;
     Dates: start: 20081001, end: 20100519
  14. METADONE [Concomitant]
     Indication: PAIN
     Dosage: 10 MILLIGRAM;
     Dates: start: 20091201, end: 20100519

REACTIONS (6)
  - DRUG INEFFECTIVE [None]
  - CONFUSIONAL STATE [None]
  - ABDOMINAL PAIN UPPER [None]
  - HEADACHE [None]
  - LETHARGY [None]
  - DRUG PRESCRIBING ERROR [None]
